FAERS Safety Report 23750491 (Version 1)
Quarter: 2024Q2

REPORT INFORMATION
  Report Type: Spontaneous
  Country: US (occurrence: US)
  Receive Date: 20240417
  Receipt Date: 20240417
  Transmission Date: 20240716
  Serious: No
  Sender: FDA-Public Use
  Company Number: US-Nobelpharma America, LLC-NPA-2024-00583

PATIENT
  Sex: Male

DRUGS (11)
  1. HYFTOR [Suspect]
     Active Substance: SIROLIMUS
     Indication: Tuberous sclerosis complex
     Dosage: APPLY 1 CM OR 300 MG TO AFFECTED AREA OF THE FACE TWICE DAILY
     Dates: start: 20230920
  2. Allergy relief [Concomitant]
  3. AMLODIPINE BESYLATE [Concomitant]
     Active Substance: AMLODIPINE BESYLATE
  4. CETIRIZINE [Concomitant]
     Active Substance: CETIRIZINE HYDROCHLORIDE
     Dosage: 5 MG/5ML
  5. CLOBAZAM [Concomitant]
     Active Substance: CLOBAZAM
  6. CLONIDINE [Concomitant]
     Active Substance: CLONIDINE
  7. DIAZEPAM [Concomitant]
     Active Substance: DIAZEPAM
  8. ERGOCALCIFEROL [Concomitant]
     Active Substance: ERGOCALCIFEROL
     Dosage: 8000/ML
  9. FLOVENT HFA [Concomitant]
     Active Substance: FLUTICASONE PROPIONATE
  10. FLUTICASONE [Concomitant]
     Active Substance: FLUTICASONE
  11. GABAPENTIN [Concomitant]
     Active Substance: GABAPENTIN
     Dosage: 250 MG/5ML

REACTIONS (2)
  - Sensory level abnormal [Unknown]
  - Product dose omission issue [Unknown]
